FAERS Safety Report 17466578 (Version 1)
Quarter: 2020Q1

REPORT INFORMATION
  Report Type: Spontaneous
  Country: CN (occurrence: CN)
  Receive Date: 20200227
  Receipt Date: 20200227
  Transmission Date: 20200409
  Serious: Yes (Other)
  Sender: FDA-Public Use
  Company Number: CN-DRREDDYS-GPV/CHN/20/0120050

PATIENT
  Age: 44 Year
  Sex: Female
  Weight: 45 kg

DRUGS (5)
  1. OLANZAPINE. [Suspect]
     Active Substance: OLANZAPINE
     Indication: PSYCHOTIC DISORDER
     Dosage: EVERY NIGHT
     Route: 048
     Dates: start: 20200110, end: 20200116
  2. OLANZAPINE. [Suspect]
     Active Substance: OLANZAPINE
     Dosage: 5 MG IN DAY AND 5 MG AT NIGHT
     Route: 048
     Dates: start: 20200113, end: 20200119
  3. OLANZAPINE. [Suspect]
     Active Substance: OLANZAPINE
     Dosage: 5 MG IN DAY AND 10 MG AT NIGHT
     Route: 048
     Dates: start: 20200116, end: 20200119
  4. OLANZAPINE. [Suspect]
     Active Substance: OLANZAPINE
     Route: 048
     Dates: start: 20200119, end: 20200216
  5. OLANZAPINE. [Suspect]
     Active Substance: OLANZAPINE
     Dosage: DOSE REDUCED
     Route: 048
     Dates: start: 20200216

REACTIONS (2)
  - Thyroid function test abnormal [Recovering/Resolving]
  - Hyperprolactinaemia [Recovering/Resolving]

NARRATIVE: CASE EVENT DATE: 20200206
